FAERS Safety Report 24880070 (Version 3)
Quarter: 2025Q1

REPORT INFORMATION
  Report Type: Spontaneous
  Country: US (occurrence: US)
  Receive Date: 20250123
  Receipt Date: 20250130
  Transmission Date: 20250408
  Serious: Yes (Life-Threatening, Other)
  Sender: PFIZER
  Company Number: US-PFIZER INC-PV202500008333

PATIENT
  Age: 33 Year
  Sex: Female
  Weight: 56 kg

DRUGS (30)
  1. ATRACURIUM BESYLATE [Suspect]
     Active Substance: ATRACURIUM BESYLATE
     Indication: Neuromuscular blockade
     Route: 042
  2. ATRACURIUM BESYLATE [Suspect]
     Active Substance: ATRACURIUM BESYLATE
     Route: 042
  3. ATRACURIUM BESYLATE [Suspect]
     Active Substance: ATRACURIUM BESYLATE
     Route: 042
  4. ATRACURIUM BESYLATE [Suspect]
     Active Substance: ATRACURIUM BESYLATE
  5. ATRACURIUM BESYLATE [Suspect]
     Active Substance: ATRACURIUM BESYLATE
  6. ATRACURIUM BESYLATE [Suspect]
     Active Substance: ATRACURIUM BESYLATE
  7. ATRACURIUM BESYLATE [Suspect]
     Active Substance: ATRACURIUM BESYLATE
  8. ATRACURIUM BESYLATE [Suspect]
     Active Substance: ATRACURIUM BESYLATE
     Route: 042
  9. ATRACURIUM BESYLATE [Suspect]
     Active Substance: ATRACURIUM BESYLATE
  10. VECURONIUM BROMIDE [Suspect]
     Active Substance: VECURONIUM BROMIDE
     Indication: Neuromuscular blockade
  11. VECURONIUM BROMIDE [Suspect]
     Active Substance: VECURONIUM BROMIDE
     Route: 042
  12. VECURONIUM BROMIDE [Suspect]
     Active Substance: VECURONIUM BROMIDE
     Route: 042
  13. VECURONIUM BROMIDE [Suspect]
     Active Substance: VECURONIUM BROMIDE
     Route: 042
  14. LORAZEPAM [Concomitant]
     Active Substance: LORAZEPAM
     Indication: Sedation
     Route: 042
  15. LORAZEPAM [Concomitant]
     Active Substance: LORAZEPAM
  16. LORAZEPAM [Concomitant]
     Active Substance: LORAZEPAM
     Route: 042
  17. MORPHINE [Concomitant]
     Active Substance: MORPHINE
  18. MORPHINE [Concomitant]
     Active Substance: MORPHINE
  19. DOPAMINE [Concomitant]
     Active Substance: DOPAMINE HYDROCHLORIDE
     Route: 042
  20. MIDAZOLAM [Concomitant]
     Active Substance: MIDAZOLAM
     Indication: Sedation
     Route: 042
  21. MIDAZOLAM [Concomitant]
     Active Substance: MIDAZOLAM
     Route: 042
  22. MIDAZOLAM [Concomitant]
     Active Substance: MIDAZOLAM
  23. MIDAZOLAM [Concomitant]
     Active Substance: MIDAZOLAM
  24. FENTANYL [Concomitant]
     Active Substance: FENTANYL
  25. FENTANYL [Concomitant]
     Active Substance: FENTANYL
  26. FENTANYL [Concomitant]
     Active Substance: FENTANYL
  27. CEFTRIAXONE [Concomitant]
     Active Substance: CEFTRIAXONE
  28. SUCRALFATE [Concomitant]
     Active Substance: SUCRALFATE
  29. ALBUTEROL [Concomitant]
     Active Substance: ALBUTEROL
  30. IPRATROPIUM BROMIDE [Concomitant]
     Active Substance: IPRATROPIUM BROMIDE

REACTIONS (2)
  - Drug ineffective [Unknown]
  - Drug resistance [Unknown]
